FAERS Safety Report 10073345 (Version 1)
Quarter: 2014Q2

REPORT INFORMATION
  Report Type: Spontaneous
  Country: US (occurrence: US)
  Receive Date: 20140411
  Receipt Date: 20140411
  Transmission Date: 20141212
  Serious: No
  Sender: FDA-Public Use
  Company Number: US-009507513-1404USA004740

PATIENT
  Sex: Female

DRUGS (10)
  1. FOSAMAX [Suspect]
     Indication: OSTEOPOROSIS
     Dosage: 70 MG, QW
     Route: 048
     Dates: start: 20140307
  2. AMLODIPINE [Concomitant]
  3. COZAAR [Concomitant]
  4. PRAVASTATIN SODIUM [Concomitant]
  5. METFORMIN [Concomitant]
  6. MAGNESIUM (UNSPECIFIED) [Concomitant]
  7. CITRACAL [Concomitant]
  8. NEXIUM [Concomitant]
  9. OMEGA-3 MARINE TRIGLYCERIDES [Concomitant]
  10. ASPIRIN [Concomitant]

REACTIONS (7)
  - Bowel movement irregularity [Unknown]
  - Sensation of foreign body [Unknown]
  - Choking [Unknown]
  - Oesophageal disorder [Unknown]
  - Throat tightness [Unknown]
  - Dysphagia [Unknown]
  - Muscle spasms [Unknown]
